FAERS Safety Report 4297861-6 (Version None)
Quarter: 2004Q1

REPORT INFORMATION
  Report Type: 
  Country: None (occurrence: None)
  Receive Date: 20040126
  Receipt Date: 20030922
  Transmission Date: 20041129
  Serious: No
  Sender: FDA-Public Use
  Company Number: USA030947911

PATIENT
  Age: 15 Year
  Sex: Female
  Weight: 53 kg

DRUGS (1)
  1. STRATTERA [Suspect]
     Dosage: 25 MG/DAY
     Dates: start: 20030901

REACTIONS (5)
  - DISTURBANCE IN ATTENTION [None]
  - INITIAL INSOMNIA [None]
  - IRRITABILITY [None]
  - MOOD SWINGS [None]
  - SOMNOLENCE [None]
